FAERS Safety Report 22617608 (Version 1)
Quarter: 2023Q2

REPORT INFORMATION
  Report Type: Other
  Country: US (occurrence: None)
  Receive Date: 20230620
  Receipt Date: 20230620
  Transmission Date: 20230722
  Serious: Yes (Death, Hospitalization)
  Sender: FDA-Public Use
  Company Number: US-ROCHE-3369830

PATIENT
  Age: 19 Year
  Sex: Female
  Weight: 51 kg

DRUGS (2)
  1. EVRYSDI [Suspect]
     Active Substance: RISDIPLAM
     Indication: Spinal muscular atrophy
     Dosage: STRENGTH 0.75MG/ML
     Route: 065
  2. SPINRAZA [Concomitant]
     Active Substance: NUSINERSEN

REACTIONS (1)
  - Death [Fatal]
